FAERS Safety Report 8970780 (Version 2)
Quarter: 2012Q4

REPORT INFORMATION
  Report Type: 
  Country: US (occurrence: US)
  Receive Date: 20121217
  Receipt Date: 20121227
  Transmission Date: 20130627
  Serious: Yes (Hospitalization, Other)
  Sender: FDA-Public Use
  Company Number: US-PFIZER INC-2012271008

PATIENT
  Age: 53 Year
  Sex: Female
  Weight: 99.77 kg

DRUGS (9)
  1. NEURONTIN [Suspect]
     Indication: NERVE PAIN
     Dosage: 300 mg, 3x/day
     Route: 048
     Dates: start: 2011
  2. NEURONTIN [Suspect]
     Indication: NERVE PAIN
     Dosage: 300 mg, 3x/day
     Route: 048
     Dates: start: 2011
  3. NEURONTIN [Suspect]
     Indication: BACK PAIN
  4. NEURONTIN [Suspect]
     Indication: PAIN IN HIP
  5. NEURONTIN [Suspect]
     Indication: PAIN IN LEG
  6. ARTHROTEC [Suspect]
     Indication: ARTHRITIS
     Dosage: 75mg/200mcg, 2x/day
     Route: 048
     Dates: start: 2011
  7. ARTHROTEC [Suspect]
     Indication: OSTEOARTHRITIS
  8. LORTAB [Concomitant]
     Dosage: UNK, 3x/day
  9. DOXEPIN [Concomitant]
     Indication: SLEEP PROBLEM
     Dosage: UNK, 1x/day

REACTIONS (7)
  - Nephrolithiasis [Not Recovered/Not Resolved]
  - Irritable bowel syndrome [Unknown]
  - Gastric infection [Not Recovered/Not Resolved]
  - Malaise [Not Recovered/Not Resolved]
  - Poor peripheral circulation [Not Recovered/Not Resolved]
  - Cardiac disorder [Unknown]
  - Pain [Not Recovered/Not Resolved]
